FAERS Safety Report 11117688 (Version 1)
Quarter: 2015Q2

REPORT INFORMATION
  Report Type: Spontaneous
  Country: US (occurrence: US)
  Receive Date: 20150518
  Receipt Date: 20150518
  Transmission Date: 20150821
  Serious: No
  Sender: FDA-Public Use
  Company Number: US-SUN PHARMACEUTICAL INDUSTRIES LTD-2015SUN00624

PATIENT

DRUGS (2)
  1. TOPIRAMATE TABS 25MG [Suspect]
     Active Substance: TOPIRAMATE
     Indication: MIGRAINE
     Dosage: 50 MG, DAILY FOR TWO YEARS
     Route: 048
  2. TOPIRAMATE TABS 25MG [Suspect]
     Active Substance: TOPIRAMATE
     Dosage: 25 MG DAILY FOR ONE MONTH AND THEN EVERY OTHER DAY FOR THREE WEEKS
     Route: 048
     Dates: start: 201412, end: 201502

REACTIONS (3)
  - Micturition urgency [Not Recovered/Not Resolved]
  - Anxiety [Not Recovered/Not Resolved]
  - Insomnia [Not Recovered/Not Resolved]

NARRATIVE: CASE EVENT DATE: 201412
